FAERS Safety Report 9695386 (Version 1)
Quarter: 2013Q4

REPORT INFORMATION
  Report Type: Spontaneous
  Country: US (occurrence: None)
  Receive Date: 20131118
  Receipt Date: 20131118
  Transmission Date: 20140711
  Serious: No
  Sender: FDA-Public Use
  Company Number: None

PATIENT
  Age: 11 Year
  Sex: Male
  Weight: 54.43 kg

DRUGS (1)
  1. CEFDINIR [Suspect]
     Indication: INFECTION
     Route: 048
     Dates: start: 20130920

REACTIONS (2)
  - Product label on wrong product [None]
  - Drug administration error [None]
